FAERS Safety Report 10256260 (Version 1)
Quarter: 2014Q2

REPORT INFORMATION
  Report Type: Spontaneous
  Country: US (occurrence: US)
  Receive Date: 20140624
  Receipt Date: 20140624
  Transmission Date: 20141212
  Serious: No
  Sender: FDA-Public Use
  Company Number: US-ASTRAZENECA-2014SE41172

PATIENT
  Age: 88 Year
  Sex: Male
  Weight: 79.4 kg

DRUGS (8)
  1. CRESTOR [Suspect]
     Indication: BLOOD CHOLESTEROL INCREASED
     Route: 048
  2. PLAVIX [Concomitant]
     Indication: TRANSIENT ISCHAEMIC ATTACK
  3. MULTIVITAMINS [Concomitant]
     Dosage: UNK DAILY
  4. TRAVATAN EYE DROPS [Concomitant]
     Dosage: UNK DAILY
  5. BRIMONIDINE EYE DROPS [Concomitant]
     Dosage: UNK DAILY
  6. ANTACID [Concomitant]
     Indication: HIATUS HERNIA
     Dosage: UNK DAILY
  7. PRESERVISION WITH LUTEIN [Concomitant]
     Dosage: UNK DAILY
  8. VIT D [Concomitant]

REACTIONS (1)
  - Diarrhoea [Not Recovered/Not Resolved]
